FAERS Safety Report 15779034 (Version 3)
Quarter: 2019Q1

REPORT INFORMATION
  Report Type: Spontaneous
  Country: PL (occurrence: PL)
  Receive Date: 20190101
  Receipt Date: 20190204
  Transmission Date: 20190417
  Serious: Yes (Hospitalization, Other)
  Sender: FDA-Public Use
  Company Number: PHHY2018PL197935

PATIENT
  Age: 70 Year
  Sex: Female

DRUGS (10)
  1. CISPLATIN. [Suspect]
     Active Substance: CISPLATIN
     Indication: LUNG NEOPLASM MALIGNANT
     Dosage: 50 MG, QD ON DAYS 1-3
     Route: 065
  2. CISPLATIN. [Suspect]
     Active Substance: CISPLATIN
     Indication: SMALL CELL LUNG CANCER EXTENSIVE STAGE
  3. ADRENALIN [Concomitant]
     Active Substance: EPINEPHRINE
     Indication: HAEMORRHAGE
     Dosage: UNK
     Route: 065
  4. ETOPOSIDE. [Suspect]
     Active Substance: ETOPOSIDE
     Indication: SMALL CELL LUNG CANCER EXTENSIVE STAGE
  5. CARBOPLATIN. [Suspect]
     Active Substance: CARBOPLATIN
     Indication: SMALL CELL LUNG CANCER EXTENSIVE STAGE
  6. ACETYLSALICYLIC ACID [Suspect]
     Active Substance: ASPIRIN
     Indication: ANTICOAGULANT THERAPY
     Dosage: UNK
     Route: 065
  7. ETOPOSIDE. [Suspect]
     Active Substance: ETOPOSIDE
     Indication: LUNG NEOPLASM MALIGNANT
     Dosage: 120 MG/M2 ON DAY 1 -3 OR 550 MG AND 200 MG, RESPECTIVELY
     Route: 065
  8. CARBOPLATIN. [Suspect]
     Active Substance: CARBOPLATIN
     Indication: LUNG NEOPLASM MALIGNANT
     Dosage: 300 MG/M2, UNK (ON DAY 1)
     Route: 065
  9. THROMBIN [Concomitant]
     Active Substance: THROMBIN
     Indication: HAEMORRHAGE
     Dosage: UNK
     Route: 065
  10. CLOPIDOGREL [Suspect]
     Active Substance: CLOPIDOGREL BISULFATE
     Indication: ANTICOAGULANT THERAPY
     Dosage: UNK
     Route: 065

REACTIONS (11)
  - Chest discomfort [Unknown]
  - Coronary artery stenosis [Unknown]
  - Tumour lysis syndrome [Unknown]
  - Dyspnoea [Unknown]
  - Blood pressure decreased [Unknown]
  - Anxiety [Unknown]
  - Myocardial infarction [Unknown]
  - Respiratory failure [Unknown]
  - Haemoglobin decreased [Recovered/Resolved]
  - Angina pectoris [Unknown]
  - Pancytopenia [Unknown]
